FAERS Safety Report 8456373-6 (Version None)
Quarter: 2012Q2

REPORT INFORMATION
  Report Type: 
  Country: None (occurrence: None)
  Receive Date: 20120621
  Receipt Date: 20120614
  Transmission Date: 20120825
  Serious: Yes (Hospitalization)
  Sender: FDA-Public Use
  Company Number: TW-GLAXOSMITHKLINE-B0809175A

PATIENT
  Sex: Male

DRUGS (10)
  1. AVANDAMET [Suspect]
     Indication: DIABETES MELLITUS
     Route: 065
     Dates: start: 20051005
  2. LONITEN [Concomitant]
     Route: 065
     Dates: start: 20060208
  3. NORVASC [Concomitant]
     Dosage: 5MG TWICE PER DAY
     Route: 065
     Dates: start: 20051005
  4. ALLOPURINOL [Concomitant]
     Dosage: 100MG TWICE PER DAY
     Route: 065
     Dates: start: 20051005
  5. OLMESARTAN MEDOXOMIL [Concomitant]
     Dosage: 20MG PER DAY
     Route: 065
     Dates: start: 20051005
  6. TENORMIN [Concomitant]
     Dosage: 100MG PER DAY
     Dates: start: 20060208
  7. ROSUVASTATIN [Suspect]
     Indication: PRODUCT USED FOR UNKNOWN INDICATION
     Dosage: 10MG PER DAY
     Route: 065
     Dates: start: 20051005, end: 20060308
  8. CRESTOR [Concomitant]
     Dosage: 10MG PER DAY
     Route: 065
     Dates: start: 20051005
  9. UNKNOWN DRUG [Concomitant]
     Route: 065
     Dates: start: 20051005
  10. DOXABEN [Concomitant]
     Route: 065

REACTIONS (8)
  - MYALGIA [None]
  - HYPOAESTHESIA [None]
  - DIARRHOEA [None]
  - EYE OEDEMA [None]
  - PALPITATIONS [None]
  - LIP OEDEMA [None]
  - FACE OEDEMA [None]
  - ABDOMINAL DISCOMFORT [None]
